FAERS Safety Report 20847375 (Version 1)
Quarter: 2022Q2

REPORT INFORMATION
  Report Type: Spontaneous
  Country: US (occurrence: US)
  Receive Date: 20220519
  Receipt Date: 20220519
  Transmission Date: 20220721
  Serious: Yes (Other)
  Sender: FDA-Public Use
  Company Number: US-SUN PHARMACEUTICAL INDUSTRIES LTD-2022R1-336861

PATIENT
  Age: 26 Year
  Sex: Female

DRUGS (3)
  1. AZITHROMYCIN [Suspect]
     Active Substance: AZITHROMYCIN
     Indication: Syphilis
     Dosage: 2000 MILLIGRAM/ AT 17 GESTATION WEEK
     Route: 048
  2. AZITHROMYCIN [Suspect]
     Active Substance: AZITHROMYCIN
     Indication: Bronchitis
     Dosage: 1500 MILLIGRAM/ AT 29 WEEK GESTATION
     Route: 065
  3. DOXYCYCLINE [Suspect]
     Active Substance: DOXYCYCLINE
     Indication: Syphilis
     Dosage: 100 MILLIGRAM, BID
     Route: 048

REACTIONS (4)
  - Exposure during pregnancy [Unknown]
  - Drug ineffective [Unknown]
  - Placental disorder [Not Recovered/Not Resolved]
  - Live birth [Unknown]
